FAERS Safety Report 7934416-3 (Version None)
Quarter: 2011Q4

REPORT INFORMATION
  Report Type: 
  Country: None (occurrence: None)
  Receive Date: 20111122
  Receipt Date: 20111113
  Transmission Date: 20120403
  Serious: Yes (Other)
  Sender: FDA-Public Use
  Company Number: US-GLAXOSMITHKLINE-A0953036A

PATIENT
  Age: 29 Year
  Sex: Female

DRUGS (2)
  1. LAMOTRIGINE [Suspect]
     Indication: EPILEPSY
     Route: 048
     Dates: start: 20111001, end: 20111030
  2. KEPPRA [Concomitant]

REACTIONS (8)
  - HYPOAESTHESIA [None]
  - ALOPECIA [None]
  - MUSCULOSKELETAL STIFFNESS [None]
  - PARAESTHESIA [None]
  - MIGRAINE [None]
  - CONVULSION [None]
  - BONE PAIN [None]
  - JOINT CREPITATION [None]
